FAERS Safety Report 14126579 (Version 6)
Quarter: 2018Q1

REPORT INFORMATION
  Report Type: Report from Study
  Country: US (occurrence: US)
  Receive Date: 20171025
  Receipt Date: 20180105
  Transmission Date: 20180508
  Serious: Yes (Hospitalization)
  Sender: FDA-Public Use
  Company Number: US-ACTELION-A-US2015-127292

PATIENT
  Age: 27 Year
  Sex: Female
  Weight: 64.85 kg

DRUGS (5)
  1. VELETRI [Suspect]
     Active Substance: EPOPROSTENOL
     Indication: PULMONARY ARTERIAL HYPERTENSION
     Dosage: 6 NG/KG, PER MIN
     Route: 042
     Dates: start: 20151110
  2. OPSUMIT [Suspect]
     Active Substance: MACITENTAN
     Indication: PULMONARY ARTERIAL HYPERTENSION
     Dosage: 10 MG, QD
     Route: 048
  3. VELETRI [Suspect]
     Active Substance: EPOPROSTENOL
     Dosage: 40 NG/KG, PER MIN
     Route: 042
  4. REVATIO [Concomitant]
     Active Substance: SILDENAFIL CITRATE
  5. ADEMPAS [Concomitant]
     Active Substance: RIOCIGUAT

REACTIONS (35)
  - Device occlusion [Unknown]
  - Chills [Unknown]
  - Bacteraemia [Unknown]
  - Catheter placement [Unknown]
  - Syncope [Unknown]
  - Asthenia [Unknown]
  - Dizziness [Unknown]
  - Feeling hot [Unknown]
  - Device leakage [Unknown]
  - Palpitations [Unknown]
  - Device infusion issue [Unknown]
  - Rash [Unknown]
  - Vomiting [Unknown]
  - Pain in jaw [Unknown]
  - Lung transplant [Unknown]
  - Chest pain [Unknown]
  - Hypotension [Unknown]
  - Dyspnoea [Unknown]
  - Loss of personal independence in daily activities [Unknown]
  - Diarrhoea [Unknown]
  - Pneumonia [Unknown]
  - Nausea [Unknown]
  - Pain [Unknown]
  - Flushing [Unknown]
  - Catheter site erythema [Unknown]
  - Bradycardia [Unknown]
  - Eating disorder [Unknown]
  - Pruritus [Unknown]
  - Abdominal pain upper [Unknown]
  - Device related infection [Unknown]
  - Pyrexia [Unknown]
  - Gait disturbance [Unknown]
  - Headache [Unknown]
  - Presyncope [Unknown]
  - Catheter site haemorrhage [Unknown]
